FAERS Safety Report 7604088-6 (Version None)
Quarter: 2011Q2

REPORT INFORMATION
  Report Type: 
  Country: None (occurrence: None)
  Receive Date: 20110630
  Receipt Date: 20110616
  Transmission Date: 20111010
  Serious: Yes (Hospitalization)
  Sender: FDA-Public Use
  Company Number: 2011AP001243

PATIENT
  Age: 24 Year
  Sex: Male

DRUGS (5)
  1. FOLIC ACID [Concomitant]
  2. CODEINE PHOSPHATE (CODEINE PHOSPHATE) [Concomitant]
  3. FERROUS FUMARATE [Concomitant]
  4. CITALOPRAM HYDROBROMIDE [Suspect]
     Indication: DEPRESSION
     Dosage: 40 MG, PO
     Route: 048
     Dates: start: 20110510
  5. TEMAZEPAM [Concomitant]

REACTIONS (3)
  - DUODENAL PERFORATION [None]
  - ABDOMINAL PAIN [None]
  - DUODENAL ULCER [None]
